FAERS Safety Report 22228145 (Version 1)
Quarter: 2023Q2

REPORT INFORMATION
  Report Type: Spontaneous
  Country: US (occurrence: US)
  Receive Date: 20230419
  Receipt Date: 20230419
  Transmission Date: 20230721
  Serious: No
  Sender: FDA-Public Use
  Company Number: US-BAYER-2023A048175

PATIENT
  Age: 67 Year
  Sex: Female

DRUGS (1)
  1. AVELOX [Suspect]
     Active Substance: MOXIFLOXACIN HYDROCHLORIDE
     Indication: Essential hypertension
     Dosage: 97 MG, BID
     Route: 048
     Dates: start: 202207

REACTIONS (1)
  - Product prescribing issue [None]
